FAERS Safety Report 5085547-X (Version None)
Quarter: 2006Q3

REPORT INFORMATION
  Report Type: 
  Country: None (occurrence: None)
  Receive Date: 20060822
  Receipt Date: 20040323
  Transmission Date: 20061208
  Serious: Yes (Hospitalization, Other)
  Sender: FDA-Public Use
  Company Number: US-GLAXOSMITHKLINE-A0504818A

PATIENT
  Age: 60 Year
  Sex: Female

DRUGS (7)
  1. NICORETTE [Suspect]
     Dosage: 2MG SEE DOSAGE TEXT
     Route: 002
     Dates: start: 19990101
  2. NICORETTE [Suspect]
     Dosage: 4MG SEE DOSAGE TEXT
     Route: 002
     Dates: start: 19940101, end: 19990101
  3. SYNTHROID [Concomitant]
     Route: 048
  4. LOTENSIN [Concomitant]
     Route: 048
  5. PREMARIN [Concomitant]
     Route: 048
  6. POTASSIUM SUPPLEMENT [Concomitant]
     Route: 048
  7. FLOVENT [Concomitant]
     Route: 055

REACTIONS (4)
  - LUNG CANCER METASTATIC [None]
  - LUNG NEOPLASM [None]
  - LUNG NEOPLASM MALIGNANT [None]
  - PAPILLARY THYROID CANCER [None]
